FAERS Safety Report 9236565 (Version 1)
Quarter: 2013Q2

REPORT INFORMATION
  Report Type: Spontaneous
  Country: US (occurrence: US)
  Receive Date: 20130417
  Receipt Date: 20130417
  Transmission Date: 20140414
  Serious: Yes (Other)
  Sender: FDA-Public Use
  Company Number: US-ROCHE-1214333

PATIENT
  Age: 53 Year
  Sex: Female

DRUGS (11)
  1. XOLAIR [Suspect]
     Indication: PRODUCT USED FOR UNKNOWN INDICATION
     Route: 058
  2. SINGULAIR [Concomitant]
     Route: 065
  3. XYZAL [Concomitant]
     Route: 065
  4. METFORMIN [Concomitant]
     Route: 065
  5. DETROL [Concomitant]
     Route: 065
  6. SOMA [Concomitant]
     Route: 065
  7. BENADRYL [Concomitant]
     Route: 065
  8. ZANTAC [Concomitant]
     Route: 065
  9. PREDNISONE [Concomitant]
     Route: 065
  10. FORADIL [Concomitant]
     Route: 065
  11. ATROVENT INHALER [Concomitant]
     Route: 065

REACTIONS (1)
  - Ataxia [Unknown]
